FAERS Safety Report 12655987 (Version 1)
Quarter: 2016Q3

REPORT INFORMATION
  Report Type: Spontaneous
  Country: US (occurrence: US)
  Receive Date: 20160816
  Receipt Date: 20160816
  Transmission Date: 20161109
  Serious: Yes (Other)
  Sender: FDA-Public Use
  Company Number: US-ROCHE-1612038

PATIENT
  Age: 67 Year
  Sex: Male

DRUGS (1)
  1. PEGASYS [Suspect]
     Active Substance: PEGINTERFERON ALFA-2A
     Indication: LEUKAEMIA
     Dosage: 1ML SDV
     Route: 058
     Dates: start: 20140609

REACTIONS (3)
  - Myocardial infarction [Unknown]
  - Memory impairment [Unknown]
  - Hallucination [Unknown]

NARRATIVE: CASE EVENT DATE: 201502
